FAERS Safety Report 4935175-9 (Version None)
Quarter: 2006Q1

REPORT INFORMATION
  Report Type: 
  Country: None (occurrence: None)
  Receive Date: 20060306
  Receipt Date: 20060306
  Transmission Date: 20060701
  Serious: Yes (Other)
  Sender: FDA-Public Use
  Company Number: None

PATIENT
  Sex: Male
  Weight: 68.9467 kg

DRUGS (2)
  1. CARDIZEM CD [Suspect]
     Indication: HYPERTENSION
     Dosage: 240MG BID PO
     Route: 048
  2. CARDIZEM CD [Suspect]
     Indication: VENTRICULAR TACHYCARDIA
     Dosage: 240MG BID PO
     Route: 048

REACTIONS (2)
  - NAUSEA [None]
  - PHARMACEUTICAL PRODUCT COMPLAINT [None]
